FAERS Safety Report 7625572-5 (Version None)
Quarter: 2011Q3

REPORT INFORMATION
  Report Type: 
  Country: None (occurrence: None)
  Receive Date: 20110713
  Receipt Date: 20110707
  Transmission Date: 20111222
  Serious: Yes (Death, Hospitalization)
  Sender: FDA-Public Use
  Company Number: DSA_46942_2011

PATIENT
  Sex: Female

DRUGS (1)
  1. XENAZINE [Suspect]
     Indication: TARDIVE DYSKINESIA
     Dosage: (12.5 MG 1/2 TAB EACH MORNING AND 1 TAB EACH EVENING) ORAL)
     Route: 048
     Dates: start: 20100901, end: 20110601

REACTIONS (1)
  - PNEUMONIA [None]
